FAERS Safety Report 13658332 (Version 1)
Quarter: 2017Q2

REPORT INFORMATION
  Report Type: Spontaneous
  Country: NL (occurrence: NL)
  Receive Date: 20170616
  Receipt Date: 20170616
  Transmission Date: 20170830
  Serious: Yes (Other)
  Sender: FDA-Public Use
  Company Number: NL-ALVOGEN-2017-ALVOGEN-092403

PATIENT
  Age: 60 Year
  Sex: Male

DRUGS (3)
  1. NIFEDIPINE. [Suspect]
     Active Substance: NIFEDIPINE
     Indication: HYPERTENSION
  2. FOSINOPRIL [Interacting]
     Active Substance: FOSINOPRIL
     Indication: HYPERTENSION
  3. IMMUNOGLOBULINS [Interacting]
     Active Substance: IMMUNE GLOBULIN NOS
     Indication: CHRONIC INFLAMMATORY DEMYELINATING POLYRADICULONEUROPATHY
     Route: 042

REACTIONS (2)
  - Drug interaction [Unknown]
  - Cutaneous lupus erythematosus [Recovering/Resolving]
